FAERS Safety Report 6697241-X (Version None)
Quarter: 2010Q2

REPORT INFORMATION
  Report Type: 
  Country: None (occurrence: None)
  Receive Date: 20100426
  Receipt Date: 20100415
  Transmission Date: 20101027
  Serious: Yes (Death, Other)
  Sender: FDA-Public Use
  Company Number: FI-PFIZER INC-2010005326

PATIENT
  Age: 41 Year
  Sex: Female
  Weight: 99.773 kg

DRUGS (13)
  1. LYRICA [Suspect]
     Dosage: UNK
  2. METHADONE [Concomitant]
     Indication: DRUG DEPENDENCE
     Dosage: UNK
     Dates: start: 20080514, end: 20080516
  3. RIVATRIL [Concomitant]
     Dosage: 2 MG, 3X/DAY
  4. DIAZEPAM [Concomitant]
  5. TEMAZEPAM [Concomitant]
  6. OXYCODONE [Concomitant]
  7. THEOBROMINE [Concomitant]
  8. THEOPHYLLINE [Concomitant]
  9. OXAZEPAM [Concomitant]
  10. FLUCONAZOLE [Concomitant]
  11. NICOTINE [Concomitant]
  12. CLONAZEPAM [Concomitant]
  13. TRAMADOL [Concomitant]
     Dosage: UNK

REACTIONS (5)
  - COMPLETED SUICIDE [None]
  - DRUG DEPENDENCE [None]
  - DRUG TOXICITY [None]
  - FATIGUE [None]
  - HYPERSOMNIA [None]
